FAERS Safety Report 14066026 (Version 1)
Quarter: 2017Q4

REPORT INFORMATION
  Report Type: Spontaneous
  Country: CN (occurrence: CN)
  Receive Date: 20171009
  Receipt Date: 20171009
  Transmission Date: 20180321
  Serious: Yes (Death, Life-Threatening)
  Sender: FDA-Public Use
  Company Number: CN-BAYER-2017-186272

PATIENT
  Age: 61 Year
  Sex: Male
  Weight: 65 kg

DRUGS (9)
  1. WARFARIN SODIUM. [Suspect]
     Active Substance: WARFARIN SODIUM
     Indication: STENT PLACEMENT
     Dosage: 3 MG, QOD
     Route: 048
     Dates: start: 20170705, end: 20170804
  2. BAYASPIRIN 100 MG [Suspect]
     Active Substance: ASPIRIN
     Indication: ARTERIOSCLEROSIS
     Dosage: 100 MG, QD
     Route: 048
     Dates: start: 20170628, end: 20170804
  3. XARELTO [Concomitant]
     Active Substance: RIVAROXABAN
     Indication: STENT PLACEMENT
     Dosage: 15 MG, BID
     Route: 048
     Dates: start: 20170701, end: 20170702
  4. ANPLAG [Concomitant]
     Active Substance: SARPOGRELATE
     Indication: ARTERIAL OCCLUSIVE DISEASE
     Dosage: 100 MG, TID
     Route: 048
     Dates: start: 20170628, end: 20170804
  5. ANPLAG [Concomitant]
     Active Substance: SARPOGRELATE
     Indication: PERIPHERAL ISCHAEMIA
  6. INDAPAMIDE. [Concomitant]
     Active Substance: INDAPAMIDE
     Indication: HYPERTENSION
     Dosage: 2.5 MG, QD
     Dates: start: 2011
  7. XARELTO [Concomitant]
     Active Substance: RIVAROXABAN
     Indication: STENT PLACEMENT
     Dosage: 15 MG, BID
     Route: 048
     Dates: start: 20170704, end: 20170705
  8. XARELTO [Concomitant]
     Active Substance: RIVAROXABAN
     Indication: STENT PLACEMENT
     Dosage: 10 MG, BID
     Route: 048
     Dates: start: 20170706, end: 20170710
  9. LIPITOR [Concomitant]
     Active Substance: ATORVASTATIN CALCIUM
     Dosage: UNK

REACTIONS (1)
  - Haemorrhage intracranial [Fatal]

NARRATIVE: CASE EVENT DATE: 20170728
